FAERS Safety Report 17430503 (Version 5)
Quarter: 2020Q2

REPORT INFORMATION
  Report Type: Spontaneous
  Country: US (occurrence: US)
  Receive Date: 20200218
  Receipt Date: 20200427
  Transmission Date: 20200713
  Serious: Yes (Other)
  Sender: FDA-Public Use
  Company Number: US-PFIZER INC-2020070109

PATIENT
  Age: 71 Year
  Sex: Female
  Weight: 81.65 kg

DRUGS (3)
  1. PREMARIN [Suspect]
     Active Substance: ESTROGENS, CONJUGATED
     Dosage: 0.4 G, 2X/WEEK (0.4 GM IN THE VAGINA TWO TIMES WEEKLY)
     Route: 067
  2. PREMARIN [Suspect]
     Active Substance: ESTROGENS, CONJUGATED
     Indication: ATROPHIC VULVOVAGINITIS
     Dosage: UNK (USE A FINGERTIP FULL, INSERT IN VAGINA AND RUB IT AROUND)
     Route: 067
  3. PREMARIN [Suspect]
     Active Substance: ESTROGENS, CONJUGATED
     Dosage: 0.5 G, DAILY (0.5 GM IN THE VAGINA EVERY NIGHT FOR 2 WEEKS)
     Route: 067

REACTIONS (10)
  - Pneumonia [Unknown]
  - Wrong technique in product usage process [Unknown]
  - Malaise [Unknown]
  - Product use issue [Unknown]
  - Dyschezia [Unknown]
  - Hypoacusis [Unknown]
  - Off label use [Unknown]
  - Nasopharyngitis [Unknown]
  - Bladder prolapse [Unknown]
  - Sinusitis [Unknown]
